FAERS Safety Report 6453079-X (Version None)
Quarter: 2009Q4

REPORT INFORMATION
  Report Type: 
  Country: None (occurrence: None)
  Receive Date: 20091117
  Receipt Date: 20091030
  Transmission Date: 20100525
  Serious: Yes (Death, Hospitalization)
  Sender: FDA-Public Use
  Company Number: 2009003714

PATIENT
  Age: 69 Year
  Sex: Male

DRUGS (5)
  1. TREANDA [Suspect]
     Indication: CHRONIC LYMPHOCYTIC LEUKAEMIA
     Dosage: 169.02 MG (90 MG/M2,CYCLICAL), INTRAVENOUS
     Route: 042
     Dates: start: 20090304, end: 20090306
  2. RITUXAN [Suspect]
     Indication: CHRONIC LYMPHOCYTIC LEUKAEMIA
     Dosage: INTRAVENOUS
     Route: 042
     Dates: start: 20090303, end: 20090303
  3. BACTRIM [Suspect]
     Dates: end: 20090327
  4. VALACYCLOVIR HCL [Concomitant]
  5. FLUCONAZOLE [Concomitant]

REACTIONS (17)
  - ABSCESS [None]
  - BACTEROIDES INFECTION [None]
  - BLOOD CULTURE POSITIVE [None]
  - BRONCHOPULMONARY ASPERGILLOSIS [None]
  - CAPNOCYTOPHAGIA INFECTION [None]
  - CONFUSIONAL STATE [None]
  - DERMATITIS EXFOLIATIVE [None]
  - DISORDER OF ORBIT [None]
  - DRUG ERUPTION [None]
  - DYSPHAGIA [None]
  - ESCHERICHIA INFECTION [None]
  - EYELID PTOSIS [None]
  - OEDEMA PERIPHERAL [None]
  - ORAL FUNGAL INFECTION [None]
  - PLATELET COUNT DECREASED [None]
  - SERUM SICKNESS [None]
  - SKIN EXFOLIATION [None]
